FAERS Safety Report 13586170 (Version 1)
Quarter: 2017Q2

REPORT INFORMATION
  Report Type: Spontaneous
  Country: MY (occurrence: MY)
  Receive Date: 20170526
  Receipt Date: 20170526
  Transmission Date: 20170830
  Serious: Yes (Other)
  Sender: FDA-Public Use
  Company Number: MY-MERZ NORTH AMERICA, INC.-16MRZ-00567

PATIENT
  Age: 42 Year
  Sex: Female
  Weight: 50 kg

DRUGS (1)
  1. XEOMIN [Suspect]
     Active Substance: INCOBOTULINUMTOXINA
     Indication: SKIN WRINKLING
     Dosage: (10 IU,1 IN 1 TOTAL)
     Dates: start: 20160903, end: 20160903

REACTIONS (1)
  - Injection site rash [Recovered/Resolved]

NARRATIVE: CASE EVENT DATE: 20160906
